FAERS Safety Report 7589439-3 (Version None)
Quarter: 2011Q3

REPORT INFORMATION
  Report Type: 
  Country: None (occurrence: None)
  Receive Date: 20110705
  Receipt Date: 20110622
  Transmission Date: 20111222
  Serious: Yes (Hospitalization)
  Sender: FDA-Public Use
  Company Number: US-JNJFOC-20101104455

PATIENT
  Sex: Female
  Weight: 82.99 kg

DRUGS (8)
  1. RISPERIDONE [Suspect]
     Route: 048
     Dates: start: 20100918, end: 20101024
  2. RISPERIDONE [Suspect]
     Route: 048
     Dates: start: 20100819, end: 20101024
  3. CIPROFLOXACIN HYDROCHLORIDE [Concomitant]
     Route: 065
     Dates: start: 20100908
  4. RISPERIDONE [Suspect]
     Indication: SCHIZOPHRENIA
     Route: 048
     Dates: start: 20100918, end: 20101024
  5. RISPERIDONE [Suspect]
     Route: 048
     Dates: start: 20100902, end: 20100917
  6. PROZAC [Suspect]
     Indication: DEPRESSION
     Route: 065
     Dates: start: 20100929, end: 20101024
  7. LORAZEPAM [Suspect]
     Indication: ANXIETY
     Route: 065
     Dates: start: 20101015, end: 20101024
  8. ORTHO CYCLEN-28 [Concomitant]
     Route: 065
     Dates: start: 20100725

REACTIONS (7)
  - HAEMOGLOBIN DECREASED [None]
  - BLOOD URINE [None]
  - DEPRESSION [None]
  - SELF INJURIOUS BEHAVIOUR [None]
  - URINE LEUKOCYTE ESTERASE [None]
  - MEAN CELL VOLUME DECREASED [None]
  - PROTEIN URINE [None]
